FAERS Safety Report 10344061 (Version 3)
Quarter: 2014Q3

REPORT INFORMATION
  Report Type: Spontaneous
  Country: DE (occurrence: None)
  Receive Date: 20140724
  Receipt Date: 20140808
  Transmission Date: 20150326
  Serious: Yes (Life-Threatening, Hospitalization)
  Sender: FDA-Public Use
  Company Number: 2014DE006195

PATIENT
  Age: 80 Year
  Sex: Male

DRUGS (5)
  1. FALITHROM (PHENPROCOUMON) [Concomitant]
  2. FINURAL (FINASTERIDE) [Concomitant]
  3. TAMSUBLOCK (TAMSULOSIN HYDROCHLORIDE) [Concomitant]
  4. BISOPROLOL (BISOPROLOL) [Concomitant]
     Active Substance: BISOPROLOL
  5. ELIGARD [Suspect]
     Active Substance: LEUPROLIDE ACETATE
     Indication: PROSTATE CANCER
     Dosage: 22.5 MG, Q3MONTHS, SUBCUTANEOUS
     Route: 058
     Dates: start: 201407, end: 201407

REACTIONS (3)
  - Large intestine polyp [None]
  - Lower gastrointestinal haemorrhage [None]
  - Diverticulum intestinal haemorrhagic [None]

NARRATIVE: CASE EVENT DATE: 201407
